FAERS Safety Report 6771449-7 (Version None)
Quarter: 2010Q2

REPORT INFORMATION
  Report Type: 
  Country: None (occurrence: None)
  Receive Date: 20100616
  Receipt Date: 20100506
  Transmission Date: 20101027
  Serious: Yes (Hospitalization, Other)
  Sender: FDA-Public Use
  Company Number: US-BAXTER-2010BH008217

PATIENT
  Age: 29 Year
  Sex: Male
  Weight: 126 kg

DRUGS (14)
  1. HEPARIN SODIUM [Suspect]
     Indication: STERNOTOMY
     Route: 042
     Dates: start: 20080414, end: 20080415
  2. HEPARIN SODIUM [Suspect]
     Indication: CORONARY ARTERY BYPASS
     Route: 042
     Dates: start: 20080414, end: 20080415
  3. HEPARIN SODIUM [Suspect]
     Indication: INTRA-AORTIC BALLOON PLACEMENT
     Route: 042
     Dates: start: 20080414, end: 20080415
  4. HEPARIN SODIUM [Suspect]
     Route: 058
     Dates: start: 20080414, end: 20080415
  5. HEPARIN SODIUM [Suspect]
     Route: 058
     Dates: start: 20080414, end: 20080415
  6. HEPARIN SODIUM [Suspect]
     Route: 058
     Dates: start: 20080414, end: 20080415
  7. TYLENOL (CAPLET) [Concomitant]
     Indication: DRUG USE FOR UNKNOWN INDICATION
     Route: 065
  8. ASPIRIN [Concomitant]
     Indication: DRUG USE FOR UNKNOWN INDICATION
     Route: 065
  9. LISINOPRIL [Concomitant]
     Indication: DRUG USE FOR UNKNOWN INDICATION
     Route: 065
  10. NITROGLYCERIN [Concomitant]
     Indication: DRUG USE FOR UNKNOWN INDICATION
     Route: 065
  11. ZOCOR [Concomitant]
     Indication: DRUG USE FOR UNKNOWN INDICATION
     Route: 065
  12. GLYBURIDE AND METFORMIN HCL [Concomitant]
     Indication: DRUG USE FOR UNKNOWN INDICATION
     Route: 065
  13. MIDAZOLAM [Concomitant]
     Indication: DRUG USE FOR UNKNOWN INDICATION
     Route: 041
  14. FENTANYL [Concomitant]
     Indication: DRUG USE FOR UNKNOWN INDICATION
     Route: 041

REACTIONS (17)
  - ACUTE HEPATIC FAILURE [None]
  - BLISTER [None]
  - CARDIOGENIC SHOCK [None]
  - COAGULOPATHY [None]
  - FLUID OVERLOAD [None]
  - HEPARIN-INDUCED THROMBOCYTOPENIA [None]
  - HYPERSENSITIVITY [None]
  - HYPERTENSION [None]
  - HYPOTENSION [None]
  - OEDEMA PERIPHERAL [None]
  - PAIN [None]
  - PEDAL PULSE DECREASED [None]
  - PERIPHERAL EMBOLISM [None]
  - RENAL FAILURE ACUTE [None]
  - RESPIRATORY FAILURE [None]
  - SKIN ULCER [None]
  - STAPHYLOCOCCAL INFECTION [None]
